FAERS Safety Report 6475255-2 (Version None)
Quarter: 2009Q4

REPORT INFORMATION
  Report Type: 
  Country: None (occurrence: None)
  Receive Date: 20091204
  Receipt Date: 20091124
  Transmission Date: 20100525
  Serious: Yes (Life-Threatening, Hospitalization)
  Sender: FDA-Public Use
  Company Number: BE-JNJFOC-20091107151

PATIENT
  Age: 43 Year
  Sex: Female
  Weight: 70 kg

DRUGS (7)
  1. ACETAMINOPHEN [Suspect]
  2. ACETAMINOPHEN [Suspect]
     Indication: DRUG USE FOR UNKNOWN INDICATION
  3. PROPOFOL [Concomitant]
     Indication: ANAESTHESIA
  4. DESFLURANE [Concomitant]
     Indication: ANAESTHESIA
  5. SUFENTANIL CITRATE [Concomitant]
     Indication: ANAESTHESIA
  6. ROCURONIUM BROMIDE [Concomitant]
     Indication: ANAESTHESIA
  7. KETOROLAC TROMETHAMINE [Concomitant]
     Route: 042

REACTIONS (2)
  - HEPATITIS FULMINANT [None]
  - MULTI-ORGAN FAILURE [None]
